FAERS Safety Report 19567025 (Version 1)
Quarter: 2021Q3

REPORT INFORMATION
  Report Type: Spontaneous
  Country: US (occurrence: US)
  Receive Date: 20210714
  Receipt Date: 20210714
  Transmission Date: 20211014
  Serious: Yes (Hospitalization)
  Sender: FDA-Public Use
  Company Number: US-ABBVIE-21K-163-3985943-00

PATIENT
  Sex: Female
  Weight: 81.27 kg

DRUGS (5)
  1. VITAMIN B12 [Concomitant]
     Active Substance: CYANOCOBALAMIN
     Indication: SUPPLEMENTATION THERAPY
  2. SYNTHROID [Suspect]
     Active Substance: LEVOTHYROXINE SODIUM
     Indication: THYROID HORMONE REPLACEMENT THERAPY
     Route: 048
     Dates: start: 199304, end: 199309
  3. VITAMIN D3 [Concomitant]
     Active Substance: CHOLECALCIFEROL
     Indication: COVID-19 PROPHYLAXIS
  4. SYNTHROID [Suspect]
     Active Substance: LEVOTHYROXINE SODIUM
     Route: 048
     Dates: start: 201806
  5. SYNTHROID [Suspect]
     Active Substance: LEVOTHYROXINE SODIUM
     Route: 048
     Dates: start: 199309, end: 201805

REACTIONS (11)
  - Body temperature decreased [Unknown]
  - Cholelithiasis [Recovered/Resolved]
  - Thyroid function test abnormal [Recovering/Resolving]
  - Sepsis [Recovered/Resolved]
  - Weight decreased [Recovered/Resolved]
  - Chest pain [Recovered/Resolved]
  - Heart rate increased [Not Recovered/Not Resolved]
  - Pancreas infection [Recovered/Resolved]
  - Cholecystitis infective [Recovered/Resolved]
  - Weight increased [Recovering/Resolving]
  - Hyperhidrosis [Unknown]

NARRATIVE: CASE EVENT DATE: 1993
